FAERS Safety Report 18663796 (Version 5)
Quarter: 2025Q2

REPORT INFORMATION
  Report Type: Spontaneous
  Country: PL (occurrence: PL)
  Receive Date: 20201224
  Receipt Date: 20250628
  Transmission Date: 20250716
  Serious: Yes (Hospitalization, Other)
  Sender: AUROBINDO
  Company Number: PL-ZENTIVA-2020-ZT-032830

PATIENT
  Age: 18 Year
  Sex: Female

DRUGS (13)
  1. PREGABALIN [Suspect]
     Active Substance: PREGABALIN
     Indication: Neurological symptom
     Route: 048
  2. PREGABALIN [Suspect]
     Active Substance: PREGABALIN
     Indication: Borderline personality disorder
  3. QUETIAPINE [Suspect]
     Active Substance: QUETIAPINE
     Indication: Neurological symptom
     Route: 065
  4. QUETIAPINE [Suspect]
     Active Substance: QUETIAPINE
     Indication: Borderline personality disorder
  5. VENLAFAXINE [Suspect]
     Active Substance: VENLAFAXINE HYDROCHLORIDE
     Indication: Neurological symptom
     Route: 065
  6. VENLAFAXINE [Suspect]
     Active Substance: VENLAFAXINE HYDROCHLORIDE
     Indication: Borderline personality disorder
  7. CLORAZEPIC ACID [Suspect]
     Active Substance: CLORAZEPIC ACID
     Indication: Neurological symptom
     Route: 065
  8. CLORAZEPIC ACID [Suspect]
     Active Substance: CLORAZEPIC ACID
     Indication: Borderline personality disorder
  9. PERAZINE [Suspect]
     Active Substance: PERAZINE
     Indication: Neurological symptom
     Route: 065
  10. PERAZINE [Suspect]
     Active Substance: PERAZINE
     Indication: Borderline personality disorder
  11. TRAZODONE [Suspect]
     Active Substance: TRAZODONE HYDROCHLORIDE
     Indication: Neurological symptom
     Route: 065
  12. TRAZODONE [Suspect]
     Active Substance: TRAZODONE HYDROCHLORIDE
     Indication: Borderline personality disorder
  13. CLORAZEPATE DIPOTASSIUM [Suspect]
     Active Substance: CLORAZEPATE DIPOTASSIUM
     Indication: Borderline personality disorder
     Route: 065

REACTIONS (10)
  - Altered state of consciousness [Unknown]
  - Irritability [Unknown]
  - Anxiety [Unknown]
  - Dizziness [Unknown]
  - Confusional state [Unknown]
  - Withdrawal syndrome [Unknown]
  - Refusal of treatment by patient [Unknown]
  - Treatment noncompliance [Unknown]
  - Off label use [Unknown]
  - Drug ineffective [Unknown]
